FAERS Safety Report 15915361 (Version 2)
Quarter: 2020Q1

REPORT INFORMATION
  Report Type: Spontaneous
  Country: US (occurrence: US)
  Receive Date: 20190204
  Receipt Date: 20200206
  Transmission Date: 20200409
  Serious: No
  Sender: FDA-Public Use
  Company Number: US-ABBVIE-18P-163-2475880-00

PATIENT
  Sex: Female

DRUGS (1)
  1. HUMIRA [Suspect]
     Active Substance: ADALIMUMAB
     Indication: HIDRADENITIS
     Route: 058

REACTIONS (7)
  - Muscular weakness [Unknown]
  - Back pain [Recovering/Resolving]
  - Diplegia [Unknown]
  - Irritability [Unknown]
  - Algophobia [Unknown]
  - Pain [Unknown]
  - Coccydynia [Recovering/Resolving]
